FAERS Safety Report 19855055 (Version 1)
Quarter: 2021Q3

REPORT INFORMATION
  Report Type: Spontaneous
  Country: US (occurrence: US)
  Receive Date: 20210916
  Receipt Date: 20210916
  Transmission Date: 20211014
  Serious: No
  Sender: FDA-Public Use
  Company Number: None

PATIENT
  Age: 90 Year
  Sex: Male

DRUGS (1)
  1. ABIRATERONE TAB 250MG [Suspect]
     Active Substance: ABIRATERONE
     Route: 048
     Dates: start: 202103

REACTIONS (4)
  - Malignant neoplasm progression [None]
  - Thrombosis [None]
  - Gait inability [None]
  - Bladder disorder [None]

NARRATIVE: CASE EVENT DATE: 20210901
